FAERS Safety Report 7676453-2 (Version None)
Quarter: 2011Q3

REPORT INFORMATION
  Report Type: 
  Country: None (occurrence: None)
  Receive Date: 20110805
  Receipt Date: 20110726
  Transmission Date: 20111222
  Serious: Yes (Other)
  Sender: FDA-Public Use
  Company Number: 11-449

PATIENT
  Age: 75 Year
  Sex: Female
  Weight: 78.82 kg

DRUGS (1)
  1. NAPROXEN SODIUM [Suspect]
     Dosage: 220MG, ONCE, ORAL
     Route: 048
     Dates: start: 20110704, end: 20110704

REACTIONS (2)
  - FEAR [None]
  - CHOKING [None]
